FAERS Safety Report 8561085-4 (Version None)
Quarter: 2012Q3

REPORT INFORMATION
  Report Type: 
  Country: None (occurrence: None)
  Receive Date: 20120802
  Receipt Date: 20120508
  Transmission Date: 20120928
  Serious: Yes (Hospitalization)
  Sender: FDA-Public Use
  Company Number: US-BRISTOL-MYERS SQUIBB COMPANY-16485781

PATIENT
  Age: 45 Year
  Sex: Female

DRUGS (2)
  1. NORVIR [Suspect]
  2. REYATAZ [Suspect]

REACTIONS (1)
  - HOSPITALISATION [None]
